FAERS Safety Report 12248386 (Version 1)
Quarter: 2016Q2

REPORT INFORMATION
  Report Type: Spontaneous
  Country: US (occurrence: None)
  Receive Date: 20160407
  Receipt Date: 20160407
  Transmission Date: 20160815
  Serious: Yes (Other)
  Sender: FDA-Public Use
  Company Number: None

PATIENT
  Age: 51 Year
  Sex: Female
  Weight: 52.16 kg

DRUGS (14)
  1. ACTONEL [Suspect]
     Active Substance: RISEDRONATE SODIUM
     Indication: OSTEOPOROSIS
     Route: 048
  2. BEE POLLEN [Concomitant]
     Active Substance: BEE POLLEN
  3. A [Concomitant]
  4. DECARA (VITAMIN D) [Concomitant]
  5. E [Concomitant]
  6. K [Concomitant]
  7. FISH OIL [Concomitant]
     Active Substance: FISH OIL
  8. ACIDOPHILUS [Concomitant]
     Active Substance: LACTOBACILLUS ACIDOPHILUS
  9. CHROMIUM COMPLEX [Concomitant]
  10. CALCIUM W/ MAG [Concomitant]
  11. C [Concomitant]
  12. CO-Q10 [Concomitant]
  13. VALTREX [Concomitant]
     Active Substance: VALACYCLOVIR HYDROCHLORIDE
  14. GARLIC. [Concomitant]
     Active Substance: GARLIC

REACTIONS (7)
  - Impaired work ability [None]
  - Diarrhoea [None]
  - Malaise [None]
  - Chills [None]
  - Pain [None]
  - Vomiting [None]
  - Feeling abnormal [None]

NARRATIVE: CASE EVENT DATE: 20160404
